FAERS Safety Report 8386276-7 (Version None)
Quarter: 2012Q2

REPORT INFORMATION
  Report Type: 
  Country: None (occurrence: None)
  Receive Date: 20120525
  Receipt Date: 20120521
  Transmission Date: 20120825
  Serious: Yes (Other)
  Sender: FDA-Public Use
  Company Number: US-PFIZER INC-2012092810

PATIENT
  Sex: Female
  Weight: 61 kg

DRUGS (2)
  1. COZAAR [Concomitant]
     Indication: HYPERTENSION
     Dosage: 50 MG, 2X/DAY
  2. PREMARIN [Suspect]
     Indication: HORMONE REPLACEMENT THERAPY
     Dosage: UNK
     Route: 048
     Dates: start: 19820101

REACTIONS (6)
  - CHEST PAIN [None]
  - INCREASED UPPER AIRWAY SECRETION [None]
  - CYSTITIS [None]
  - INSOMNIA [None]
  - COUGH [None]
  - MALAISE [None]
